FAERS Safety Report 9344223 (Version 1)
Quarter: 2013Q2

REPORT INFORMATION
  Report Type: Spontaneous
  Country: FR (occurrence: FR)
  Receive Date: 20130612
  Receipt Date: 20130612
  Transmission Date: 20140414
  Serious: Yes (Hospitalization, Other)
  Sender: FDA-Public Use
  Company Number: FR-ASTRAZENECA-2013SE40982

PATIENT
  Age: 19369 Day
  Sex: Male

DRUGS (6)
  1. INEXIUM [Suspect]
     Route: 048
     Dates: start: 20130206, end: 20130411
  2. LAMALINE [Suspect]
     Indication: NEURALGIA
     Route: 048
     Dates: start: 20130206, end: 20130411
  3. LYRICA [Suspect]
     Indication: NEURALGIA
     Route: 048
     Dates: start: 20130206, end: 20130411
  4. LAROXYL [Suspect]
     Indication: NEURALGIA
     Route: 048
     Dates: start: 20130206, end: 20130411
  5. TRAMADOL HYDROCHLORIDE [Suspect]
     Indication: NEURALGIA
     Route: 048
     Dates: start: 20130206, end: 20130411
  6. NEURONTIN [Suspect]
     Indication: NEURALGIA
     Route: 048
     Dates: start: 20130206, end: 20130411

REACTIONS (4)
  - Overdose [Recovered/Resolved]
  - Dysarthria [Recovered/Resolved]
  - Aphasia [Unknown]
  - Confusional state [Recovered/Resolved]
